FAERS Safety Report 15150780 (Version 1)
Quarter: 2018Q3

REPORT INFORMATION
  Report Type: Spontaneous
  Country: US (occurrence: US)
  Receive Date: 20180716
  Receipt Date: 20180716
  Transmission Date: 20181010
  Serious: Yes (Other)
  Sender: FDA-Public Use
  Company Number: PHEH2018US027912

PATIENT
  Sex: Male

DRUGS (4)
  1. PSYLLIUM HUSK. [Concomitant]
     Active Substance: PSYLLIUM HUSK
     Indication: PRODUCT USED FOR UNKNOWN INDICATION
     Route: 065
  2. LATANOPROST. [Suspect]
     Active Substance: LATANOPROST
     Indication: PRODUCT USED FOR UNKNOWN INDICATION
     Route: 047
  3. TIMOLOL. [Suspect]
     Active Substance: TIMOLOL
     Indication: PRODUCT USED FOR UNKNOWN INDICATION
     Route: 047
  4. GLYCERIN SUPPOSITORIES [Concomitant]
     Indication: PRODUCT USED FOR UNKNOWN INDICATION
     Route: 065

REACTIONS (11)
  - Blindness [Unknown]
  - Anxiety [Unknown]
  - Hypoaesthesia [Unknown]
  - Irritable bowel syndrome [Unknown]
  - Feeling abnormal [Unknown]
  - Pain [Unknown]
  - Paraesthesia [Unknown]
  - Gastrooesophageal reflux disease [Unknown]
  - Neuralgia [Unknown]
  - Respiratory rate increased [Unknown]
  - Gastrointestinal pain [Unknown]
